FAERS Safety Report 9739457 (Version 3)
Quarter: 2014Q3

REPORT INFORMATION
  Report Type: Spontaneous
  Country: AT (occurrence: AT)
  Receive Date: 20131209
  Receipt Date: 20140813
  Transmission Date: 20150326
  Serious: Yes (Life-Threatening, Hospitalization, Other)
  Sender: FDA-Public Use
  Company Number: AT-B.I. PHARMACEUTICALS,INC./RIDGEFIELD-2013-BI-40946GD

PATIENT
  Age: 89 Year
  Sex: Female
  Weight: 55 kg

DRUGS (4)
  1. BISOPROLOL [Concomitant]
     Active Substance: BISOPROLOL
     Indication: PRODUCT USED FOR UNKNOWN INDICATION
     Route: 065
  2. FUROSEMIDE. [Concomitant]
     Active Substance: FUROSEMIDE
     Indication: PRODUCT USED FOR UNKNOWN INDICATION
     Route: 065
  3. XIPAMIDE [Concomitant]
     Active Substance: XIPAMIDE
     Indication: PRODUCT USED FOR UNKNOWN INDICATION
     Route: 065
  4. PRADAXA [Suspect]
     Active Substance: DABIGATRAN ETEXILATE MESYLATE
     Indication: ATRIAL FIBRILLATION
     Dosage: 220 MG
     Route: 048
     Dates: start: 201206, end: 201306

REACTIONS (11)
  - Red blood cell agglutination [Recovered/Resolved]
  - Anaemia [Unknown]
  - Lupus-like syndrome [Unknown]
  - Haematoma [Unknown]
  - Abscess limb [Unknown]
  - Shock haemorrhagic [Recovered/Resolved]
  - Renal failure [Unknown]
  - Peripheral nerve lesion [Unknown]
  - Epistaxis [Recovered/Resolved]
  - Erysipelas [Unknown]
  - Hypotension [Unknown]

NARRATIVE: CASE EVENT DATE: 201306
